FAERS Safety Report 9603689 (Version 1)
Quarter: 2013Q4

REPORT INFORMATION
  Report Type: Spontaneous
  Country: US (occurrence: US)
  Receive Date: 20131007
  Receipt Date: 20131007
  Transmission Date: 20140711
  Serious: No
  Sender: FDA-Public Use
  Company Number: US-009507513-1310USA003131

PATIENT
  Sex: Female

DRUGS (2)
  1. DR. SCHOLLS CLEAR AWAY WART REMOVER [Suspect]
     Indication: HYPERKERATOSIS
     Dosage: UNK, UNKNOWN
     Route: 061
  2. DR. SCHOLLS CLEAR AWAY WART REMOVER [Suspect]
     Indication: PAIN

REACTIONS (1)
  - Drug effect decreased [Unknown]
